FAERS Safety Report 6450470-2 (Version None)
Quarter: 2009Q4

REPORT INFORMATION
  Report Type: 
  Country: None (occurrence: None)
  Receive Date: 20091123
  Receipt Date: 20091020
  Transmission Date: 20100525
  Serious: No
  Sender: FDA-Public Use
  Company Number: US-BAYER-200938548NA

PATIENT
  Age: 34 Year
  Sex: Male

DRUGS (3)
  1. ULTRAVIST 300 [Suspect]
     Indication: COMPUTERISED TOMOGRAM ABDOMEN
     Dosage: TOTAL DAILY DOSE: 150 ML
  2. READI-CAT [Concomitant]
     Route: 048
  3. ZYRTEC [Concomitant]

REACTIONS (3)
  - EAR PRURITUS [None]
  - NASAL CONGESTION [None]
  - SNEEZING [None]
